FAERS Safety Report 9912936 (Version 1)
Quarter: 2014Q1

REPORT INFORMATION
  Report Type: Spontaneous
  Country: US (occurrence: None)
  Receive Date: 20140218
  Receipt Date: 20140218
  Transmission Date: 20141002
  Serious: No
  Sender: FDA-Public Use
  Company Number: None

PATIENT
  Age: 69 Year
  Sex: Female
  Weight: 58.97 kg

DRUGS (3)
  1. PREDNISONE [Suspect]
     Indication: INFLAMMATION
     Dosage: STARTS WITH 4 PILLS DECREASED OVER 15 DAYS
     Route: 048
     Dates: start: 20140131, end: 20140212
  2. PREDNISONE [Suspect]
     Indication: COUGH
     Dosage: STARTS WITH 4 PILLS DECREASED OVER 15 DAYS
     Route: 048
     Dates: start: 20140131, end: 20140212
  3. PREDNISONE [Suspect]
     Indication: ASTHMA
     Dosage: STARTS WITH 4 PILLS DECREASED OVER 15 DAYS
     Route: 048
     Dates: start: 20140131, end: 20140212

REACTIONS (5)
  - Palpitations [None]
  - Thinking abnormal [None]
  - Dizziness [None]
  - Insomnia [None]
  - Derealisation [None]
